FAERS Safety Report 4301678-3 (Version None)
Quarter: 2004Q1

REPORT INFORMATION
  Report Type: 
  Country: None (occurrence: None)
  Receive Date: 20040217
  Receipt Date: 20040204
  Transmission Date: 20041129
  Serious: Yes (Other)
  Sender: FDA-Public Use
  Company Number: 200410039BYL

PATIENT
  Age: 13 Year
  Sex: Male

DRUGS (1)
  1. GAMIMUNE N 5% [Suspect]
     Indication: STEM CELL TRANSPLANT
     Dosage: INTRAVENOUS
     Route: 042
     Dates: start: 20031101

REACTIONS (1)
  - HTLV-1 ANTIBODY POSITIVE [None]
